FAERS Safety Report 23422172 (Version 1)
Quarter: 2024Q1

REPORT INFORMATION
  Report Type: Report from Study
  Country: IN (occurrence: None)
  Receive Date: 20240119
  Receipt Date: 20240119
  Transmission Date: 20240410
  Serious: Yes (Life-Threatening, Hospitalization, Other)
  Sender: FDA-Public Use
  Company Number: 2023A284326

PATIENT
  Sex: Male

DRUGS (3)
  1. TAGRISSO [Suspect]
     Active Substance: OSIMERTINIB
     Indication: Metastatic neoplasm
     Dosage: 80.0MG ONCE/SINGLE ADMINISTRATION
     Route: 048
  2. VITAMINS [Concomitant]
     Active Substance: VITAMINS
  3. CALCIUM [Concomitant]
     Active Substance: CALCIUM

REACTIONS (3)
  - Peripheral swelling [Recovering/Resolving]
  - Rash [Recovered/Resolved]
  - Dengue fever [Recovered/Resolved]
